FAERS Safety Report 9403764 (Version 1)
Quarter: 2013Q3

REPORT INFORMATION
  Report Type: Spontaneous
  Country: BG (occurrence: None)
  Receive Date: 20130712
  Receipt Date: 20130712
  Transmission Date: 20140515
  Serious: Yes (Hospitalization)
  Sender: FDA-Public Use
  Company Number: NPIL/ISO/H/2013/53

PATIENT
  Age: 25 Year
  Sex: Female

DRUGS (1)
  1. ISOFLURANE [Suspect]
     Indication: ANAESTHESIA

REACTIONS (4)
  - Cough [None]
  - Salivary hypersecretion [None]
  - Anaesthetic complication [None]
  - Exposure during pregnancy [None]
